FAERS Safety Report 7570972-5 (Version None)
Quarter: 2011Q2

REPORT INFORMATION
  Report Type: 
  Country: None (occurrence: None)
  Receive Date: 20110624
  Receipt Date: 20110615
  Transmission Date: 20111010
  Serious: Yes (Other)
  Sender: FDA-Public Use
  Company Number: GB-ASTRAZENECA-2011SE36532

PATIENT
  Age: 24 Year
  Sex: Female
  Weight: 44.2 kg

DRUGS (18)
  1. MEROPENEM [Suspect]
     Indication: CYSTIC FIBROSIS
     Route: 042
     Dates: start: 20080703, end: 20110321
  2. CALCIUM CARBONATE [Concomitant]
  3. COLOMYCIN [Concomitant]
     Indication: CYSTIC FIBROSIS
     Dates: start: 20100708
  4. PULMOZYME [Concomitant]
  5. MESALAMINE [Concomitant]
  6. MEROPENEM [Suspect]
     Route: 042
     Dates: start: 20110428, end: 20110428
  7. CREON [Concomitant]
  8. INSULIN GLARGINE [Concomitant]
  9. ALBUTEROL [Concomitant]
  10. VITAMIN A AND D CONCENTRATE [Concomitant]
  11. COLOMYCIN [Concomitant]
     Dosage: 2 MIU THREE TIMES A DAY
     Route: 042
     Dates: start: 20110428, end: 20110513
  12. FERROUS SULFATE TAB [Concomitant]
  13. OMEPRAZOLE [Concomitant]
  14. PROMIXIN [Concomitant]
  15. FLUTICASONE PROPIONATE [Concomitant]
  16. ERGOCALCIFEROL [Concomitant]
  17. SERETIDE [Concomitant]
     Route: 055
  18. VITAMIN E [Concomitant]

REACTIONS (4)
  - NAUSEA [None]
  - FEELING HOT [None]
  - PRODUCT SUBSTITUTION ISSUE [None]
  - RASH [None]
